FAERS Safety Report 8524251-X (Version None)
Quarter: 2012Q3

REPORT INFORMATION
  Report Type: 
  Country: None (occurrence: None)
  Receive Date: 20120720
  Receipt Date: 20120713
  Transmission Date: 20120928
  Serious: Yes (Death)
  Sender: FDA-Public Use
  Company Number: JP-PFIZER INC-2012158689

PATIENT
  Age: 77 Year
  Sex: Male

DRUGS (2)
  1. BROTIZOLAM [Concomitant]
     Dosage: UNK
  2. TORISEL [Suspect]
     Indication: RENAL CELL CARCINOMA
     Dosage: 20 MG, WEEKLY
     Route: 041
     Dates: end: 20110623

REACTIONS (1)
  - DEATH [None]
